FAERS Safety Report 8309251-7 (Version None)
Quarter: 2012Q2

REPORT INFORMATION
  Report Type: 
  Country: None (occurrence: None)
  Receive Date: 20120424
  Receipt Date: 20120412
  Transmission Date: 20120825
  Serious: Yes (Other)
  Sender: FDA-Public Use
  Company Number: US-RB-039371-12

PATIENT
  Age: 30 Year
  Sex: Male

DRUGS (2)
  1. SUBOXONE [Suspect]
     Dosage: VARIOUS DOSES
     Route: 060
     Dates: start: 20120401
  2. SUBOXONE [Suspect]
     Indication: DRUG ABUSE
     Dosage: VARIOUS DOSES
     Route: 042
     Dates: start: 20120101, end: 20120401

REACTIONS (4)
  - SUBSTANCE ABUSE [None]
  - BLINDNESS [None]
  - MUSCLE ATROPHY [None]
  - INTENTIONAL DRUG MISUSE [None]
